FAERS Safety Report 13049490 (Version 1)
Quarter: 2016Q4

REPORT INFORMATION
  Report Type: Spontaneous
  Country: FR (occurrence: FR)
  Receive Date: 20161221
  Receipt Date: 20161221
  Transmission Date: 20170207
  Serious: Yes (Life-Threatening, Hospitalization)
  Sender: FDA-Public Use
  Company Number: FR-PFIZER INC-662515

PATIENT
  Age: 73 Year
  Sex: Male

DRUGS (2)
  1. MIDAZOLAM WINTHROP [Suspect]
     Active Substance: MIDAZOLAM HYDROCHLORIDE
     Dosage: UNK
  2. ATRACURIUM BESILATE [Suspect]
     Active Substance: ATRACURIUM BESYLATE
     Dosage: 10 MG, SINGLE
     Route: 042
     Dates: start: 20090529, end: 20090529

REACTIONS (6)
  - Drug dispensing error [Recovered/Resolved]
  - Wrong drug administered [Recovered/Resolved]
  - Dyspnoea [Recovered/Resolved]
  - Neuromuscular blocking therapy [Recovered/Resolved]
  - Anxiety [Recovered/Resolved]
  - Product label confusion [Recovered/Resolved]

NARRATIVE: CASE EVENT DATE: 20090529
